FAERS Safety Report 4867482-2 (Version None)
Quarter: 2005Q4

REPORT INFORMATION
  Report Type: 
  Country: None (occurrence: None)
  Receive Date: 20051228
  Receipt Date: 20051219
  Transmission Date: 20060501
  Serious: Yes (Hospitalization)
  Sender: FDA-Public Use
  Company Number: US-MERCK-0512USA03157

PATIENT
  Sex: Female

DRUGS (1)
  1. VIOXX [Suspect]
     Route: 048
     Dates: start: 20010101, end: 20030801

REACTIONS (3)
  - ACUTE CORONARY SYNDROME [None]
  - CARDIOMYOPATHY [None]
  - INTRACARDIAC THROMBUS [None]
